FAERS Safety Report 14936422 (Version 1)
Quarter: 2020Q3

REPORT INFORMATION
  Report Type: Report from Study
  Country: RO (occurrence: RO)
  Receive Date: 20180524
  Receipt Date: 20180524
  Transmission Date: 20201104
  Serious: Yes (Hospitalization)
  Sender: FDA-Public Use
  Company Number: RO-TEVA-2018-RO-895071

PATIENT
  Age: 66 Year
  Sex: Female
  Weight: 103 kg

DRUGS (13)
  1. ACIDUM FOLICUM [Concomitant]
     Active Substance: FOLIC ACID
     Indication: ANAEMIA
     Dosage: 1 DOSAGE FORMS DAILY;
     Route: 048
     Dates: start: 20150730
  2. ASPIRIN. [Suspect]
     Active Substance: ASPIRIN
     Indication: HYPERTENSION
     Dosage: 75 MILLIGRAM DAILY;
     Route: 048
     Dates: start: 2010
  3. CLOPIDOGREL [Suspect]
     Active Substance: CLOPIDOGREL BISULFATE
     Indication: PERIPHERAL VENOUS DISEASE
     Dosage: 75 MILLIGRAM DAILY;
     Route: 048
     Dates: start: 20160218
  4. LANTUS [Suspect]
     Active Substance: INSULIN GLARGINE
     Indication: TYPE 2 DIABETES MELLITUS
     Dosage: 16 IU (INTERNATIONAL UNIT) DAILY;
     Route: 058
     Dates: start: 2010
  5. DIOSMIN [Concomitant]
     Active Substance: DIOSMIN
     Dosage: 1000 MILLIGRAM DAILY;
     Route: 048
     Dates: start: 20150921
  6. SORTIS [Concomitant]
     Active Substance: ATORVASTATIN
     Indication: DYSLIPIDAEMIA
     Dosage: 20 MILLIGRAM DAILY;
     Route: 048
     Dates: start: 2010
  7. DIOSMIN [Concomitant]
     Active Substance: DIOSMIN
     Dosage: 500 MILLIGRAM DAILY;
     Route: 048
     Dates: start: 20140620, end: 20150920
  8. ALLOPURINOL. [Concomitant]
     Active Substance: ALLOPURINOL
     Indication: HYPERURICAEMIA
     Dosage: 200 MILLIGRAM DAILY;
     Route: 048
     Dates: start: 2012, end: 20160218
  9. ROXADUSTAT. [Suspect]
     Active Substance: ROXADUSTAT
     Indication: ANAEMIA
     Route: 048
     Dates: start: 20150915, end: 20151107
  10. GLIQUIDONE [Suspect]
     Active Substance: GLIQUIDONE
     Indication: TYPE 2 DIABETES MELLITUS
     Dosage: 90 MILLIGRAM DAILY;
     Route: 048
     Dates: start: 2010
  11. NORVASC [Suspect]
     Active Substance: AMLODIPINE BESYLATE
     Indication: HYPERTENSION
     Dosage: 10 MILLIGRAM DAILY;
     Route: 048
     Dates: start: 2010, end: 20160218
  12. DIPYRIDAMOLE. [Concomitant]
     Active Substance: DIPYRIDAMOLE
     Indication: HYPERTENSION
     Dosage: 150 MILLIGRAM DAILY;
     Route: 048
     Dates: start: 2010, end: 20160918
  13. LEVOTHYROXINE. [Concomitant]
     Active Substance: LEVOTHYROXINE
     Indication: HYPERURICAEMIA
     Dosage: 150 MICROGRAM DAILY;
     Route: 048
     Dates: start: 2010

REACTIONS (1)
  - Gastrointestinal haemorrhage [Recovered/Resolved]

NARRATIVE: CASE EVENT DATE: 20160302
